FAERS Safety Report 10460988 (Version 1)
Quarter: 2014Q3

REPORT INFORMATION
  Report Type: Spontaneous
  Country: US (occurrence: None)
  Receive Date: 20140917
  Receipt Date: 20140917
  Transmission Date: 20150326
  Serious: No
  Sender: FDA-Public Use
  Company Number: None

PATIENT

DRUGS (2)
  1. CARDENE [Suspect]
     Active Substance: NICARDIPINE HYDROCHLORIDE
  2. NEXTERONE [Suspect]
     Active Substance: AMIODARONE HYDROCHLORIDE

REACTIONS (2)
  - Circumstance or information capable of leading to medication error [None]
  - Product packaging issue [None]
